FAERS Safety Report 13118954 (Version 1)
Quarter: 2017Q1

REPORT INFORMATION
  Report Type: Report from Study
  Country: ET (occurrence: ET)
  Receive Date: 20170116
  Receipt Date: 20170116
  Transmission Date: 20170428
  Serious: Yes (Death)
  Sender: FDA-Public Use
  Company Number: ET-B.I. PHARMACEUTICALS,INC./RIDGEFIELD-2017-BI-002373

PATIENT
  Age: 26 Year
  Sex: Female

DRUGS (2)
  1. VIRAMUNE [Suspect]
     Active Substance: NEVIRAPINE
     Indication: HIV INFECTION
     Route: 065
     Dates: start: 2011
  2. ZIDOVUDINE. [Suspect]
     Active Substance: ZIDOVUDINE
     Indication: HIV INFECTION
     Route: 065
     Dates: start: 2011

REACTIONS (1)
  - Death [Fatal]
